FAERS Safety Report 10698588 (Version 1)
Quarter: 2014Q4

REPORT INFORMATION
  Report Type: Spontaneous
  Country: US (occurrence: None)
  Receive Date: 20141223
  Receipt Date: 20141223
  Transmission Date: 20150529
  Serious: No
  Sender: FDA-Public Use
  Company Number: 1000070343

PATIENT
  Age: 53 Year
  Sex: Female

DRUGS (10)
  1. LINZESS [Suspect]
     Active Substance: LINACLOTIDE
     Indication: CONSTIPATION
     Route: 048
     Dates: start: 201407
  2. CYCLOBENZAPRINE [Concomitant]
     Active Substance: CYCLOBENZAPRINE
  3. TRAZODONE [Concomitant]
     Active Substance: TRAZODONE HYDROCHLORIDE
  4. COLACE [Concomitant]
     Active Substance: DOCUSATE SODIUM
  5. DESLORATADINE. [Concomitant]
     Active Substance: DESLORATADINE
  6. PROBIOTIC [Concomitant]
     Active Substance: PROBIOTICS NOS
  7. LISINOPRIL. [Concomitant]
     Active Substance: LISINOPRIL
  8. BUPROPION [Concomitant]
     Active Substance: BUPROPION
  9. MIRALAX (POLYETHYLENE GLYCOL) [Concomitant]
  10. TRAMADOL [Concomitant]
     Active Substance: TRAMADOL

REACTIONS (2)
  - Sinusitis [None]
  - Off label use [None]

NARRATIVE: CASE EVENT DATE: 201407
